FAERS Safety Report 9295331 (Version 1)
Quarter: 2013Q1

REPORT INFORMATION
  Report Type: Spontaneous
  Country: US (occurrence: None)
  Receive Date: 20121227
  Receipt Date: 20121227
  Transmission Date: 20140127
  Serious: No
  Sender: FDA-Public Use
  Company Number: PHEH2012US022126

PATIENT
  Sex: Female

DRUGS (8)
  1. AFINITOR [Suspect]
     Indication: BREAST CANCER METASTATIC
     Route: 048
  2. ZOMETA [Suspect]
     Route: 042
  3. ANASTROZOLE (ANASTROZOLE) [Concomitant]
  4. LOSARTAN + HIDROCLOROTIAZIDA (HYDROCHLOROTHIAZIDE, LOSARTAN) [Concomitant]
  5. GABAPENTIN (GABAPENTIN) [Concomitant]
  6. VITAMIN D (ERGOCALCIFEROL) [Concomitant]
  7. ALEVE (NAPROXEN SODIUM) [Concomitant]
  8. TRAMADOL (TRAMADOL) [Concomitant]

REACTIONS (2)
  - Hyperaesthesia [None]
  - Fatigue [None]
